FAERS Safety Report 11140798 (Version 4)
Quarter: 2018Q2

REPORT INFORMATION
  Report Type: Spontaneous
  Country: US (occurrence: US)
  Receive Date: 20150525
  Receipt Date: 20180429
  Transmission Date: 20180711
  Serious: Yes (Other)
  Sender: FDA-Public Use
  Company Number: US-JNJFOC-20150121882

PATIENT
  Age: 39 Year
  Sex: Male

DRUGS (2)
  1. RISPERDAL [Suspect]
     Active Substance: RISPERIDONE
     Indication: PRODUCT USED FOR UNKNOWN INDICATION
     Route: 065
     Dates: start: 2014, end: 201405
  2. RISPERDAL [Suspect]
     Active Substance: RISPERIDONE
     Indication: PRODUCT USED FOR UNKNOWN INDICATION
     Route: 065
     Dates: start: 201012, end: 201404

REACTIONS (12)
  - Emotional disorder [Unknown]
  - Fatigue [Unknown]
  - Gynaecomastia [Unknown]
  - Hyperhidrosis [Unknown]
  - Fear [Unknown]
  - Glucose tolerance impaired [Unknown]
  - Parkinsonism [Unknown]
  - Overweight [Unknown]
  - Breast discharge [Unknown]
  - Anxiety [Unknown]
  - Aggression [Unknown]
  - Hyperprolactinaemia [Recovered/Resolved]

NARRATIVE: CASE EVENT DATE: 20131031
